FAERS Safety Report 14686146 (Version 2)
Quarter: 2018Q3

REPORT INFORMATION
  Report Type: Spontaneous
  Country: FR (occurrence: FR)
  Receive Date: 20180327
  Receipt Date: 20180813
  Transmission Date: 20181010
  Serious: Yes (Other)
  Sender: FDA-Public Use
  Company Number: FR-JNJFOC-20180329951

PATIENT
  Age: 25 Year
  Sex: Male
  Weight: 69 kg

DRUGS (1)
  1. STELARA [Suspect]
     Active Substance: USTEKINUMAB
     Indication: CROHN^S DISEASE
     Route: 058
     Dates: start: 20161107, end: 20180305

REACTIONS (1)
  - Oligospermia [Not Recovered/Not Resolved]

NARRATIVE: CASE EVENT DATE: 20180205
